FAERS Safety Report 8814253 (Version 2)
Quarter: 2012Q4

REPORT INFORMATION
  Report Type: Spontaneous
  Country: NL (occurrence: None)
  Receive Date: 20120925
  Receipt Date: 20120928
  Transmission Date: 20130627
  Serious: Yes (Death, Other)
  Sender: FDA-Public Use
  Company Number: 2012-4344

PATIENT
  Age: 65 Year
  Sex: Female

DRUGS (6)
  1. SOMATULINE DEPOT [Suspect]
     Indication: DRUG USE FOR UNKNOWN INDICATION
     Dosage: 1 in 28 D Ongoing at time of death
     Route: 058
     Dates: start: 20120710
  2. SOMATULINE DEPOT [Suspect]
     Indication: DRUG USE FOR UNKNOWN INDICATION
  3. FUROSEMIDE (FUROSEMIDE) [Concomitant]
  4. OMEPRAZOLE (OMEPRAZOLE) [Concomitant]
  5. SPIRONOLACTONE (SPIRONOLACTONE) [Concomitant]
  6. PREDNISONE (PREDNISONE) [Concomitant]

REACTIONS (1)
  - Infection [None]
